FAERS Safety Report 9505118 (Version 1)
Quarter: 2013Q1

REPORT INFORMATION
  Report Type: Not Available
  Country: US (occurrence: US)
  Receive Date: 20130311
  Receipt Date: 20130311
  Transmission Date: 20140127
  Serious: Yes (Other)
  Sender: FDA-Public Use
  Company Number: US-LUNDBECK-DKLU1082501

PATIENT
  Sex: 0

DRUGS (5)
  1. ELSPAR [Suspect]
     Indication: T-CELL LYMPHOMA STAGE IV
  2. DEXAMETHASONE [Suspect]
     Indication: T-CELL LYMPHOMA STAGE IV
  3. METHOTREXATE [Suspect]
     Indication: T-CELL LYMPHOMA STAGE IV
  4. IFOSFAMIDE [Suspect]
     Indication: T-CELL LYMPHOMA STAGE IV
  5. ETOPOSIDE [Suspect]
     Indication: T-CELL LYMPHOMA STAGE IV

REACTIONS (1)
  - Hyperbilirubinaemia [Unknown]
